FAERS Safety Report 21225842 (Version 1)
Quarter: 2022Q3

REPORT INFORMATION
  Report Type: Spontaneous
  Country: US (occurrence: US)
  Receive Date: 20220818
  Receipt Date: 20220818
  Transmission Date: 20221026
  Serious: No
  Sender: FDA-Public Use
  Company Number: US-STRIDES ARCOLAB LIMITED-2022SP000409

PATIENT
  Age: 32 Year
  Sex: Male

DRUGS (17)
  1. PROMETHAZINE HYDROCHLORIDE [Suspect]
     Active Substance: PROMETHAZINE HYDROCHLORIDE
     Indication: Cannabinoid hyperemesis syndrome
     Dosage: 25 MILLIGRAM
     Route: 065
  2. HALOPERIDOL [Suspect]
     Active Substance: HALOPERIDOL
     Indication: Cannabinoid hyperemesis syndrome
     Dosage: 200 MILLIGRAM, HALOPERIDOL DECANOATE
     Route: 065
  3. HALOPERIDOL [Suspect]
     Active Substance: HALOPERIDOL
     Indication: Schizoaffective disorder
     Dosage: 5 MILLIGRAM
     Route: 042
  4. LIDOCAINE [Suspect]
     Active Substance: LIDOCAINE
     Indication: Cannabinoid hyperemesis syndrome
     Dosage: 15 ML
     Route: 065
  5. ONDANSETRON [Suspect]
     Active Substance: ONDANSETRON
     Indication: Cannabinoid hyperemesis syndrome
     Dosage: 4 MILLIGRAM
     Route: 065
  6. KETOROLAC [Suspect]
     Active Substance: KETOROLAC TROMETHAMINE
     Indication: Cannabinoid hyperemesis syndrome
     Dosage: 30 MILLIGRAM
     Route: 042
  7. MORPHINE [Suspect]
     Active Substance: MORPHINE
     Indication: Cannabinoid hyperemesis syndrome
     Dosage: UNK
     Route: 042
  8. PANTOPRAZOLE [Suspect]
     Active Substance: PANTOPRAZOLE
     Indication: Cannabinoid hyperemesis syndrome
     Dosage: 40 MILLIGRAM
     Route: 048
  9. SUCRALFATE [Suspect]
     Active Substance: SUCRALFATE
     Indication: Cannabinoid hyperemesis syndrome
     Dosage: 1 GRAM
     Route: 048
  10. ALUMINUM HYDROXIDE\DIMETHICONE\MAGNESIUM HYDROXIDE [Suspect]
     Active Substance: ALUMINUM HYDROXIDE\DIMETHICONE\MAGNESIUM HYDROXIDE
     Indication: Cannabinoid hyperemesis syndrome
     Dosage: 30 MILLILITER, ALUMINIUM-HYDROXIDE/MAGNESIUM-HYDROXIDE/SIMETHICONE 200-200-20 MG/5ML
     Route: 065
  11. DICYCLOMINE [Suspect]
     Active Substance: DICYCLOMINE HYDROCHLORIDE
     Indication: Cannabinoid hyperemesis syndrome
     Dosage: 10 MILLILITER
     Route: 065
  12. DICYCLOMINE [Suspect]
     Active Substance: DICYCLOMINE HYDROCHLORIDE
     Dosage: 20 MILLIGRAM
     Route: 048
  13. HYOSCYAMINE [Suspect]
     Active Substance: HYOSCYAMINE
     Indication: Cannabinoid hyperemesis syndrome
     Dosage: 0.125 MILLIGRAM
     Route: 048
  14. OMEPRAZOLE [Suspect]
     Active Substance: OMEPRAZOLE
     Indication: Cannabinoid hyperemesis syndrome
     Dosage: 40 MILLIGRAM
     Route: 065
  15. FAMOTIDINE [Suspect]
     Active Substance: FAMOTIDINE
     Indication: Cannabinoid hyperemesis syndrome
     Dosage: 40 MILLIGRAM
     Route: 065
  16. METOCLOPRAMIDE [Suspect]
     Active Substance: METOCLOPRAMIDE
     Indication: Cannabinoid hyperemesis syndrome
     Dosage: 10 MILLIGRAM
     Route: 048
  17. DIPHENHYDRAMINE [Suspect]
     Active Substance: DIPHENHYDRAMINE
     Indication: Cannabinoid hyperemesis syndrome
     Dosage: 50 MILLIGRAM
     Route: 042

REACTIONS (1)
  - Drug ineffective for unapproved indication [Unknown]
